FAERS Safety Report 7481178-2 (Version None)
Quarter: 2011Q2

REPORT INFORMATION
  Report Type: 
  Country: None (occurrence: None)
  Receive Date: 20110516
  Receipt Date: 20110511
  Transmission Date: 20111010
  Serious: Yes (Life-Threatening, Hospitalization)
  Sender: FDA-Public Use
  Company Number: PHHY2011FR10572

PATIENT
  Age: 74 Year
  Sex: Female

DRUGS (4)
  1. IRBESARTAN AND HYDROCHLOROTHIAZIDE [Interacting]
     Dosage: 1 DF, QD
     Route: 048
  2. VOLTAREN [Interacting]
     Dosage: UNK
     Route: 003
  3. METFORMIN HCL [Suspect]
     Dosage: 850 MG, TID
  4. LASIX [Interacting]
     Dosage: 1 DF, QD
     Route: 048

REACTIONS (7)
  - RENAL TUBULAR NECROSIS [None]
  - ARRHYTHMIA SUPRAVENTRICULAR [None]
  - ELECTROCARDIOGRAM T WAVE ABNORMAL [None]
  - RENAL FAILURE ACUTE [None]
  - LACTIC ACIDOSIS [None]
  - HYPERKALAEMIA [None]
  - BLOOD CREATININE INCREASED [None]
